FAERS Safety Report 9131622 (Version 1)
Quarter: 2013Q1

REPORT INFORMATION
  Report Type: Spontaneous
  Country: US (occurrence: US)
  Receive Date: 20130301
  Receipt Date: 20130301
  Transmission Date: 20140127
  Serious: Yes (Other)
  Sender: FDA-Public Use
  Company Number: US-MYLANLABS-2012S1009673

PATIENT
  Sex: Female

DRUGS (5)
  1. ACCUTANE [Suspect]
     Route: 048
     Dates: start: 19940408, end: 19940826
  2. ACCUTANE [Suspect]
     Route: 048
     Dates: start: 20050414, end: 20050515
  3. AMNESTEEM CAPSULES [Suspect]
     Route: 048
     Dates: start: 20050314, end: 20050414
  4. SOTRET [Suspect]
     Route: 048
     Dates: start: 20050418, end: 20050518
  5. SOTRET [Suspect]
     Route: 048
     Dates: start: 20050721, end: 20050821

REACTIONS (1)
  - Inflammatory bowel disease [Not Recovered/Not Resolved]
